FAERS Safety Report 13226104 (Version 1)
Quarter: 2017Q1

REPORT INFORMATION
  Report Type: Spontaneous
  Country: US (occurrence: US)
  Receive Date: 20170212
  Receipt Date: 20170212
  Transmission Date: 20170428
  Serious: Yes (Other)
  Sender: FDA-Public Use
  Company Number: None

PATIENT
  Age: 50 Year
  Sex: Female
  Weight: 61.65 kg

DRUGS (7)
  1. ARMOUR THYROID [Concomitant]
     Active Substance: THYROID, PORCINE
  2. PANTOPROZOL [Concomitant]
  3. VESTURA [Concomitant]
     Active Substance: DROSPIRENONE\ETHINYL ESTRADIOL
  4. VIBERZI [Concomitant]
     Active Substance: ELUXADOLINE
  5. PROBIOTICS [Concomitant]
     Active Substance: PROBIOTICS NOS
  6. CEFDINIR. [Suspect]
     Active Substance: CEFDINIR
     Indication: SINUSITIS
     Route: 048
  7. DOXEPIN [Concomitant]
     Active Substance: DOXEPIN

REACTIONS (8)
  - Abdominal pain upper [None]
  - Pyrexia [None]
  - Malaise [None]
  - Vomiting [None]
  - Diarrhoea [None]
  - Asthenia [None]
  - Impaired work ability [None]
  - Chills [None]

NARRATIVE: CASE EVENT DATE: 20170206
